FAERS Safety Report 15628789 (Version 3)
Quarter: 2019Q4

REPORT INFORMATION
  Report Type: Spontaneous
  Country: FR (occurrence: FR)
  Receive Date: 20181116
  Receipt Date: 20191022
  Transmission Date: 20200122
  Serious: Yes (Other)
  Sender: FDA-Public Use
  Company Number: FR-009507513-1811FRA003817

PATIENT
  Age: 78 Year
  Sex: Female
  Weight: 37 kg

DRUGS (5)
  1. ZERBAXA [Suspect]
     Active Substance: CEFTOLOZANE SULFATE\TAZOBACTAM SODIUM
     Dosage: 250/125 MG EVERY 8 HOURS
     Route: 042
     Dates: start: 20181027
  2. ZERBAXA [Suspect]
     Active Substance: CEFTOLOZANE SULFATE\TAZOBACTAM SODIUM
     Indication: SEPSIS
     Dosage: 250/125 MG: 3/DAY
     Route: 042
     Dates: start: 20181019, end: 20181024
  3. TARGOCID [Concomitant]
     Active Substance: TEICOPLANIN
     Indication: SEPSIS
     Dosage: 300 MILLIGRAM, EVERY 72 HOURS (Q3D)
     Route: 042
     Dates: start: 20181023, end: 20181026
  4. ZERBAXA [Suspect]
     Active Substance: CEFTOLOZANE SULFATE\TAZOBACTAM SODIUM
     Dosage: 250/125 MG EVERY 8 HOURS
     Dates: start: 20181024, end: 20181027
  5. FOSFOCINE [Concomitant]
     Active Substance: FOSFOMYCIN
     Indication: SEPSIS
     Dosage: 4 GRAM, EVERY 36 HOURS
     Route: 042
     Dates: start: 20181019, end: 20181108

REACTIONS (2)
  - Prescribed overdose [Recovered/Resolved]
  - Focal dyscognitive seizures [Recovered/Resolved]

NARRATIVE: CASE EVENT DATE: 20181019
